FAERS Safety Report 8438352-8 (Version None)
Quarter: 2012Q2

REPORT INFORMATION
  Report Type: 
  Country: None (occurrence: None)
  Receive Date: 20120614
  Receipt Date: 20120613
  Transmission Date: 20120825
  Serious: Yes (Hospitalization)
  Sender: FDA-Public Use
  Company Number: NL-AMGEN-NLDSP2012005809

PATIENT
  Age: 44 Year
  Sex: Male
  Weight: 95 kg

DRUGS (9)
  1. PREDNISONE TAB [Concomitant]
     Indication: DIFFUSE LARGE B-CELL LYMPHOMA
     Dosage: 100 MG, UNK
     Route: 048
     Dates: start: 20111220
  2. DOXORUBICIN HCL [Concomitant]
     Indication: DIFFUSE LARGE B-CELL LYMPHOMA
     Dosage: 110 MG, UNK
     Route: 042
     Dates: start: 20111220
  3. CYCLOPHOSPHAMIDE [Concomitant]
     Indication: DIFFUSE LARGE B-CELL LYMPHOMA
     Dosage: 1660 MG, UNK
     Route: 042
     Dates: start: 20111220
  4. VALGANCICLOVIR [Concomitant]
     Dosage: 1000 MG, UNK
     Route: 048
     Dates: start: 20111003, end: 20111227
  5. COTRIM [Concomitant]
     Dosage: 480 MG, UNK
     Route: 048
  6. PEGFILGRASTIM [Suspect]
     Indication: DIFFUSE LARGE B-CELL LYMPHOMA
     Dosage: 6 MG, UNK
     Route: 058
     Dates: start: 20111221
  7. VINCRISTINE SULFATE [Concomitant]
     Indication: DIFFUSE LARGE B-CELL LYMPHOMA
     Dosage: 2 MG, UNK
     Route: 042
     Dates: start: 20111220
  8. RITUXIMAB [Concomitant]
     Indication: DIFFUSE LARGE B-CELL LYMPHOMA
     Dosage: 800 MG, UNK
     Route: 042
     Dates: start: 20111220
  9. MOVICOLON [Concomitant]
     Indication: CONSTIPATION
     Dosage: UNK MG, UNK
     Route: 048

REACTIONS (2)
  - COUGH [None]
  - FEBRILE NEUTROPENIA [None]
